FAERS Safety Report 6032613-8 (Version None)
Quarter: 2009Q1

REPORT INFORMATION
  Report Type: 
  Country: None (occurrence: None)
  Receive Date: 20090109
  Receipt Date: 20090106
  Transmission Date: 20090719
  Serious: Yes (Death, Hospitalization, Other)
  Sender: FDA-Public Use
  Company Number: PHHY2008BR24731

PATIENT
  Age: 77 Year
  Sex: Male

DRUGS (5)
  1. FORASEQ [Suspect]
     Indication: EMPHYSEMA
     Dosage: 12/400 MCG
  2. FORASEQ [Suspect]
     Indication: CHRONIC OBSTRUCTIVE PULMONARY DISEASE
  3. FORMOTEROL FUMARATE [Concomitant]
  4. AMPLICTIL [Concomitant]
     Dosage: 7 DRP, UNK
  5. CHEMOTHERAPEUTICS NOS [Concomitant]

REACTIONS (5)
  - CONFUSIONAL STATE [None]
  - DEATH [None]
  - DEPRESSED MOOD [None]
  - LUNG INFILTRATION [None]
  - WEIGHT DECREASED [None]
